FAERS Safety Report 8132800-9 (Version None)
Quarter: 2012Q1

REPORT INFORMATION
  Report Type: 
  Country: None (occurrence: None)
  Receive Date: 20120213
  Receipt Date: 20120207
  Transmission Date: 20120608
  Serious: Yes (Hospitalization)
  Sender: FDA-Public Use
  Company Number: JP-MERCK-1202USA00470

PATIENT
  Age: 71 Year
  Sex: Female

DRUGS (3)
  1. BARACLUDE [Concomitant]
     Indication: HEPATITIS B
     Route: 048
  2. DECADRON [Concomitant]
     Route: 065
  3. JANUVIA [Suspect]
     Indication: DIABETES MELLITUS
     Route: 048

REACTIONS (1)
  - LIVER DISORDER [None]
